FAERS Safety Report 5901647-3 (Version None)
Quarter: 2008Q3

REPORT INFORMATION
  Report Type: 
  Country: None (occurrence: None)
  Receive Date: 20080929
  Receipt Date: 20080923
  Transmission Date: 20090109
  Serious: Yes (Other)
  Sender: FDA-Public Use
  Company Number: US-MERCK-0809USA04172

PATIENT

DRUGS (1)
  1. ZOCOR [Suspect]
     Route: 065
     Dates: start: 20080301

REACTIONS (1)
  - PANCYTOPENIA [None]
